FAERS Safety Report 5411523-0 (Version None)
Quarter: 2007Q3

REPORT INFORMATION
  Report Type: 
  Country: None (occurrence: None)
  Receive Date: 20070810
  Receipt Date: 20070801
  Transmission Date: 20080115
  Serious: Yes (Hospitalization)
  Sender: FDA-Public Use
  Company Number: CA-BOEHRINGER INGELHEIM PHARMACEUTICALS, INC.-2007-CN-00611CN

PATIENT

DRUGS (1)
  1. FLOMAX [Suspect]

REACTIONS (1)
  - HYPONATRAEMIA [None]
